FAERS Safety Report 17759811 (Version 1)
Quarter: 2020Q2

REPORT INFORMATION
  Report Type: Spontaneous
  Country: US (occurrence: US)
  Receive Date: 20200508
  Receipt Date: 20200508
  Transmission Date: 20200714
  Serious: No
  Sender: FDA-Public Use
  Company Number: US-SA-2020SA118563

PATIENT
  Sex: Female

DRUGS (1)
  1. AUBAGIO [Suspect]
     Active Substance: TERIFLUNOMIDE
     Indication: MULTIPLE SCLEROSIS
     Dosage: 7 MG, QD
     Route: 048
     Dates: start: 20200409

REACTIONS (6)
  - Abnormal faeces [Unknown]
  - Gastrointestinal disorder [Unknown]
  - Headache [Unknown]
  - Skin mass [Recovering/Resolving]
  - Alopecia [Unknown]
  - Pain in extremity [Unknown]
